FAERS Safety Report 6084258-1 (Version None)
Quarter: 2009Q1

REPORT INFORMATION
  Report Type: 
  Country: None (occurrence: None)
  Receive Date: 20090219
  Receipt Date: 20090210
  Transmission Date: 20090719
  Serious: Yes (Hospitalization)
  Sender: FDA-Public Use
  Company Number: PHHY2009AU05174

PATIENT
  Sex: Female

DRUGS (1)
  1. CLOZARIL [Suspect]
     Indication: PAIN IN EXTREMITY
     Dosage: 400 MG, ONCE/SINGLE

REACTIONS (1)
  - WRONG DRUG ADMINISTERED [None]
